FAERS Safety Report 7771554-2 (Version None)
Quarter: 2011Q3

REPORT INFORMATION
  Report Type: 
  Country: None (occurrence: None)
  Receive Date: 20110922
  Receipt Date: 20110413
  Transmission Date: 20111222
  Serious: No
  Sender: FDA-Public Use
  Company Number: US-ASTRAZENECA-2009UW21603

PATIENT
  Age: 41 Year
  Sex: Male
  Weight: 74.8 kg

DRUGS (16)
  1. SEROQUEL [Suspect]
     Indication: DEPRESSION
     Route: 048
     Dates: start: 19930101
  2. SEROQUEL [Suspect]
     Indication: INSOMNIA
     Route: 048
     Dates: start: 19930101
  3. SEROQUEL [Suspect]
     Route: 048
     Dates: start: 20061006
  4. CLOZAPINE [Concomitant]
  5. HALDOL [Concomitant]
  6. BUPROPION HYDROCHLORIDE [Concomitant]
     Dosage: 100 MG TAKE 1 TABLET IN THE MORNING AND TAKE 1 TABLET IN THE EVENING
     Dates: start: 20061006
  7. ZYPREXA [Concomitant]
     Indication: ANXIETY
     Dates: start: 20050101
  8. XANAX [Concomitant]
     Dosage: 1 MG DAILY 4 TIMES A DAILY AS NEEDED
     Dates: start: 20060809
  9. SEROQUEL [Suspect]
     Route: 048
     Dates: start: 20061006
  10. ZYPREXA [Concomitant]
     Indication: DEPRESSION
     Dates: start: 20050101
  11. LOVASTATIN [Concomitant]
     Dates: start: 20061006
  12. ZYPREXA [Concomitant]
     Indication: INSOMNIA
     Dates: start: 20050101
  13. SEROQUEL [Suspect]
     Route: 048
     Dates: start: 20061006
  14. ADVAIR DISKUS 100/50 [Concomitant]
     Dates: start: 20070913
  15. SEROQUEL [Suspect]
     Indication: ANXIETY
     Route: 048
     Dates: start: 19930101
  16. PRILOSEC [Concomitant]
     Dates: start: 20070913

REACTIONS (7)
  - GLUCOSE TOLERANCE IMPAIRED [None]
  - OBESITY [None]
  - HYPERCHOLESTEROLAEMIA [None]
  - BLOOD CHOLESTEROL INCREASED [None]
  - TYPE 2 DIABETES MELLITUS [None]
  - HYPERLIPIDAEMIA [None]
  - ROAD TRAFFIC ACCIDENT [None]
